FAERS Safety Report 12666655 (Version 3)
Quarter: 2016Q3

REPORT INFORMATION
  Report Type: Report from Study
  Country: US (occurrence: US)
  Receive Date: 20160819
  Receipt Date: 20160914
  Transmission Date: 20161109
  Serious: Yes (Other)
  Sender: FDA-Public Use
  Company Number: US-GILEAD-2016-0228595

PATIENT
  Age: 56 Year
  Sex: Female

DRUGS (18)
  1. ISENTRESS [Concomitant]
     Active Substance: RALTEGRAVIR POTASSIUM
  2. VERAPAMIL [Concomitant]
     Active Substance: VERAPAMIL HYDROCHLORIDE
  3. FISH OIL [Concomitant]
     Active Substance: FISH OIL
  4. FLONASE                            /00908302/ [Concomitant]
     Active Substance: MOMETASONE FUROATE
  5. TRAMADOL. [Concomitant]
     Active Substance: TRAMADOL
  6. WARFARIN [Concomitant]
     Active Substance: WARFARIN
  7. AMBRISENTAN [Suspect]
     Active Substance: AMBRISENTAN
     Indication: PULMONARY ARTERIAL HYPERTENSION
     Dosage: 10 MG, QD
     Route: 065
     Dates: start: 20130129
  8. POTASSIUM [Concomitant]
     Active Substance: POTASSIUM
  9. CLARITIN [Concomitant]
     Active Substance: LORATADINE
  10. VIDEX [Concomitant]
     Active Substance: DIDANOSINE
  11. MONTELUKAST [Concomitant]
     Active Substance: MONTELUKAST SODIUM
  12. VITAMIN D                          /00107901/ [Concomitant]
     Active Substance: ERGOCALCIFEROL
  13. FUROSEMIDE. [Concomitant]
     Active Substance: FUROSEMIDE
  14. REMODULIN [Suspect]
     Active Substance: TREPROSTINIL
     Indication: PRODUCT USED FOR UNKNOWN INDICATION
     Dosage: UNK
     Route: 058
  15. REMODULIN [Suspect]
     Active Substance: TREPROSTINIL
     Dosage: UNK
     Route: 042
  16. ADEMPAS [Suspect]
     Active Substance: RIOCIGUAT
     Indication: PRODUCT USED FOR UNKNOWN INDICATION
     Route: 065
  17. ESTRADIOL. [Concomitant]
     Active Substance: ESTRADIOL
  18. INTELENCE [Concomitant]
     Active Substance: ETRAVIRINE

REACTIONS (2)
  - Nephrolithiasis [Unknown]
  - Renal impairment [Unknown]

NARRATIVE: CASE EVENT DATE: 20160906
